FAERS Safety Report 7560264-2 (Version None)
Quarter: 2011Q2

REPORT INFORMATION
  Report Type: 
  Country: None (occurrence: None)
  Receive Date: 20110614
  Receipt Date: 20110530
  Transmission Date: 20111010
  Serious: Yes (Other)
  Sender: FDA-Public Use
  Company Number: DSJ-2011-10476

PATIENT
  Age: 74 Year
  Sex: Female

DRUGS (7)
  1. OLMESARTAN MEDOXOMIL [Suspect]
     Indication: PRODUCT USED FOR UNKNOWN INDICATION
     Dosage: PER ORAL
     Route: 048
  2. SALMETEROL XINAFOATE FLUTICASONE PROPIONATE (FLUTICASONE PROPIONAE, SA [Suspect]
     Indication: ASTHMA
     Dosage: PER ORAL
     Route: 048
  3. ZOLPIDEM TARTRATE [Suspect]
     Indication: PRODUCT USED FOR UNKNOWN INDICATION
     Dosage: PER ORAL
     Route: 048
  4. CEFDINIR [Suspect]
     Indication: PRODUCT USED FOR UNKNOWN INDICATION
     Dosage: 300 MG
  5. DILTIAZEM HYDROCHLORIDE [Suspect]
     Indication: PRODUCT USED FOR UNKNOWN INDICATION
     Dosage: PER ORAL
     Route: 048
  6. EPINASTINE HYDROCHLORIDE [Suspect]
     Dosage: PER ORAL
     Route: 048
  7. MOSAPRIDE CITRATE HYDRATE (MOSAPRIDE CITRATE) (MOSAPRIDE CITRATE) [Suspect]
     Indication: PRODUCT USED FOR UNKNOWN INDICATION
     Dosage: PER ORAL
     Route: 048

REACTIONS (4)
  - LIVER DISORDER [None]
  - ASPARTATE AMINOTRANSFERASE INCREASED [None]
  - BLOOD LACTATE DEHYDROGENASE INCREASED [None]
  - ALANINE AMINOTRANSFERASE INCREASED [None]
